FAERS Safety Report 14355426 (Version 6)
Quarter: 2018Q2

REPORT INFORMATION
  Report Type: Spontaneous
  Country: RO (occurrence: RO)
  Receive Date: 20180105
  Receipt Date: 20180531
  Transmission Date: 20180711
  Serious: Yes (Other)
  Sender: FDA-Public Use
  Company Number: RO-AUROBINDO-AUR-APL-2018-000337

PATIENT
  Age: 68 Year
  Sex: Female
  Weight: 54 kg

DRUGS (26)
  1. LACTULOSE. [Concomitant]
     Active Substance: LACTULOSE
     Indication: PRODUCT USED FOR UNKNOWN INDICATION
     Dosage: UNK ()
     Route: 065
     Dates: start: 20160309
  2. LACTULOSE. [Concomitant]
     Active Substance: LACTULOSE
     Dosage: ()
     Route: 065
  3. SILIMARIN [Concomitant]
     Dosage: UNKNOWN ()
     Route: 065
  4. INULIN [Concomitant]
     Active Substance: INULIN
     Dosage: ()
     Route: 065
  5. URSODEOXYCHOLIC ACID [Concomitant]
     Active Substance: URSODIOL
     Dosage: ()
     Route: 065
  6. SILIMARIN [Concomitant]
     Dosage: ()
     Route: 065
  7. INULIN [Concomitant]
     Active Substance: INULIN
     Indication: PRODUCT USED FOR UNKNOWN INDICATION
     Dosage: UNK ()
     Dates: start: 20160309
  8. SILIMARIN [Concomitant]
     Indication: PRODUCT USED FOR UNKNOWN INDICATION
     Dosage: UNK ()
     Route: 065
     Dates: start: 20160309
  9. SILIMARIN [Concomitant]
     Dosage: UNKNOWN ()
     Route: 065
  10. HARVONI [Suspect]
     Active Substance: LEDIPASVIR\SOFOSBUVIR
     Indication: HEPATITIS C
     Dosage: 1 DF, QD
     Route: 048
     Dates: start: 20170621, end: 20170912
  11. LACTULOSE. [Concomitant]
     Active Substance: LACTULOSE
     Dosage: ()
     Route: 065
  12. LACTULOSE. [Concomitant]
     Active Substance: LACTULOSE
     Dosage: UNK ()
     Route: 065
  13. RIBAVIRIN FILM COATED TABLETS [Suspect]
     Active Substance: RIBAVIRIN
     Indication: HEPATITIS C
     Dosage: 600 MG, QD
     Route: 048
     Dates: start: 20170621, end: 20170719
  14. INULIN [Concomitant]
     Active Substance: INULIN
     Dosage: ()
     Route: 065
  15. INULIN [Concomitant]
     Active Substance: INULIN
     Dosage: ()
     Route: 065
  16. SILIMARIN [Concomitant]
     Dosage: ()
     Route: 065
  17. DIUREX                             /00581101/ [Concomitant]
     Indication: PRODUCT USED FOR UNKNOWN INDICATION
     Dosage: UNK ()
     Route: 065
     Dates: start: 20160309
  18. INULIN [Concomitant]
     Active Substance: INULIN
     Indication: PRODUCT USED FOR UNKNOWN INDICATION
     Dosage: UNK ()
     Route: 065
     Dates: start: 20160309
  19. URSODEOXYCHOLIC ACID [Concomitant]
     Active Substance: URSODIOL
     Indication: PRODUCT USED FOR UNKNOWN INDICATION
     Dosage: UNK ()
     Route: 065
     Dates: start: 20160309
  20. RIBAVIRIN FILM COATED TABLETS [Suspect]
     Active Substance: RIBAVIRIN
     Dosage: 400 MG, UNK
     Route: 048
     Dates: start: 20170720, end: 20170912
  21. INULIN [Concomitant]
     Active Substance: INULIN
     Dosage: ()
     Route: 065
  22. URSODEOXYCHOLIC ACID [Concomitant]
     Active Substance: URSODIOL
     Indication: PRODUCT USED FOR UNKNOWN INDICATION
     Dosage: ()
     Route: 065
  23. URSODEOXYCHOLIC ACID [Concomitant]
     Active Substance: URSODIOL
     Dosage: ()
     Route: 065
  24. LACTULOSE. [Concomitant]
     Active Substance: LACTULOSE
     Dosage: UNK ()
     Route: 065
  25. DIUREX                             /00581101/ [Concomitant]
     Indication: PRODUCT USED FOR UNKNOWN INDICATION
  26. SILIMARIN [Concomitant]
     Dosage: ()
     Route: 065

REACTIONS (5)
  - Hepatitis C [Not Recovered/Not Resolved]
  - Hepatocellular carcinoma [Not Recovered/Not Resolved]
  - Haemoglobin decreased [Unknown]
  - Drug ineffective [Not Recovered/Not Resolved]
  - Off label use [Recovered/Resolved]

NARRATIVE: CASE EVENT DATE: 2017
